FAERS Safety Report 6418896-0 (Version None)
Quarter: 2009Q4

REPORT INFORMATION
  Report Type: 
  Country: None (occurrence: None)
  Receive Date: 20091028
  Receipt Date: 20091028
  Transmission Date: 20100525
  Serious: Yes (Other)
  Sender: FDA-Public Use
  Company Number: None

PATIENT
  Sex: Male
  Weight: 86.1834 kg

DRUGS (1)
  1. DIVALPROEX SODIUM [Suspect]
     Dosage: 500 MG BID ORAL 250 MG BID ORAL
     Route: 048

REACTIONS (2)
  - ANXIETY [None]
  - NO THERAPEUTIC RESPONSE [None]
